FAERS Safety Report 6654117-1 (Version None)
Quarter: 2010Q1

REPORT INFORMATION
  Report Type: 
  Country: None (occurrence: None)
  Receive Date: 20100326
  Receipt Date: 20100319
  Transmission Date: 20100710
  Serious: Yes (Other)
  Sender: FDA-Public Use
  Company Number: US-ALLERGAN-1003726US

PATIENT
  Age: 21 Year
  Sex: Male

DRUGS (1)
  1. PRED FORTE [Suspect]
     Indication: UVEITIS
     Dosage: UNK
     Route: 047

REACTIONS (1)
  - HEPATIC ENZYME INCREASED [None]
